FAERS Safety Report 9493710 (Version 1)
Quarter: 2013Q3

REPORT INFORMATION
  Report Type: Spontaneous
  Country: CN (occurrence: CN)
  Receive Date: 20130902
  Receipt Date: 20130902
  Transmission Date: 20140515
  Serious: Yes (Death)
  Sender: FDA-Public Use
  Company Number: CN-PFIZER INC-2013248642

PATIENT
  Age: 39 Year
  Sex: Male
  Weight: 70 kg

DRUGS (1)
  1. ZYVOX [Suspect]
     Indication: SHOCK
     Dosage: 0.6 G, 2X/DAY
     Route: 041
     Dates: start: 20120708, end: 20120716

REACTIONS (2)
  - Death [Fatal]
  - Blood test abnormal [Recovering/Resolving]
